FAERS Safety Report 8783969 (Version 1)
Quarter: 2012Q4

REPORT INFORMATION
  Report Type: 
  Country: US (occurrence: None)
  Receive Date: 20120906
  Receipt Date: 20120906
  Transmission Date: 20130627
  Serious: Yes (Hospitalization)
  Sender: FDA-Public Use
  Company Number: None

PATIENT
  Sex: Male
  Weight: 114.75 kg

DRUGS (2)
  1. ALFA 2 INTERFERON 2B (INTRON-A) [Suspect]
     Indication: MELANOMA
     Dates: start: 20120806, end: 20120810
  2. ALFA 2 INTERFERON 2B (INTRON-A) [Suspect]
     Indication: CELLULITIS OF AXILLA
     Dates: start: 20120806, end: 20120810

REACTIONS (2)
  - Cellulitis [None]
  - Fungal infection [None]
